FAERS Safety Report 8502586-4 (Version None)
Quarter: 2012Q3

REPORT INFORMATION
  Report Type: 
  Country: None (occurrence: None)
  Receive Date: 20120702
  Receipt Date: 20120619
  Transmission Date: 20120928
  Serious: Yes (Life-Threatening, Other)
  Sender: FDA-Public Use
  Company Number: 2012P1043466

PATIENT
  Sex: Female

DRUGS (1)
  1. EPINEPHRINE [Suspect]

REACTIONS (1)
  - DRUG INEFFECTIVE [None]
